FAERS Safety Report 17230739 (Version 3)
Quarter: 2020Q2

REPORT INFORMATION
  Report Type: Spontaneous
  Country: CA (occurrence: CA)
  Receive Date: 20200103
  Receipt Date: 20200430
  Transmission Date: 20200713
  Serious: Yes (Other)
  Sender: FDA-Public Use
  Company Number: CA-ASTRAZENECA-2019SF92140

PATIENT
  Age: 78 Year
  Sex: Male

DRUGS (23)
  1. ISONIAZID. [Suspect]
     Active Substance: ISONIAZID
     Dosage: UNKNOWN
     Route: 065
  2. METHOTREXATE SODIUM. [Suspect]
     Active Substance: METHOTREXATE SODIUM
     Route: 042
  3. NEXIUM [Suspect]
     Active Substance: ESOMEPRAZOLE MAGNESIUM
     Route: 048
     Dates: start: 2012
  4. SALOFALK [AMINOSALICYLIC ACID] [Suspect]
     Active Substance: AMINOSALICYLIC ACID
     Dosage: UNKNOWN
     Route: 065
  5. BISOPROLOL FUMARATE. [Suspect]
     Active Substance: BISOPROLOL FUMARATE
     Dosage: UNKNOWN
     Route: 065
  6. IBUPROFEN. [Suspect]
     Active Substance: IBUPROFEN
     Dosage: UNKNOWN
     Route: 065
  7. IRON [Suspect]
     Active Substance: IRON
     Dosage: UNKNOWN
     Route: 065
  8. MEZAVANT [Suspect]
     Active Substance: MESALAMINE
     Route: 065
  9. CALCIUM GLUCONATE. [Suspect]
     Active Substance: CALCIUM GLUCONATE
     Dosage: UNKNOWN
     Route: 065
  10. METHOTREXATE SODIUM. [Suspect]
     Active Substance: METHOTREXATE SODIUM
     Dosage: UNKNOWN
     Route: 042
     Dates: start: 2016
  11. PREDNISONE. [Suspect]
     Active Substance: PREDNISONE
     Dosage: UNKNOWN
     Route: 065
     Dates: start: 1998
  12. HUMIRA [Suspect]
     Active Substance: ADALIMUMAB
     Dosage: UNKNOWN
     Route: 058
  13. LEUCOVORIN. [Suspect]
     Active Substance: LEUCOVORIN
     Route: 065
  14. METHOTREXATE SODIUM. [Suspect]
     Active Substance: METHOTREXATE SODIUM
     Dosage: ONCE A WEEK
     Route: 042
  15. VIAGRA [Suspect]
     Active Substance: SILDENAFIL CITRATE
     Dosage: 100.0MG UNKNOWN
     Route: 065
     Dates: start: 2009
  16. METHOTREXATE SODIUM. [Suspect]
     Active Substance: METHOTREXATE SODIUM
     Route: 042
  17. METHOTREXATE SODIUM. [Suspect]
     Active Substance: METHOTREXATE SODIUM
     Route: 042
  18. PREDNISONE. [Suspect]
     Active Substance: PREDNISONE
     Dosage: 5 MG TAPERING DOSE
     Route: 065
     Dates: end: 2019
  19. RIFAMPIN. [Suspect]
     Active Substance: RIFAMPIN
     Dosage: UNKNOWN
     Route: 065
  20. METHOTREXATE SODIUM. [Suspect]
     Active Substance: METHOTREXATE SODIUM
     Route: 042
     Dates: end: 2019
  21. JAMP VITAMIN D [Suspect]
     Active Substance: CHOLECALCIFEROL
     Route: 065
  22. PANTOPRAZOLE [Suspect]
     Active Substance: PANTOPRAZOLE
     Dosage: UNKNOWN
     Route: 065
  23. VITAMIN B1 [Suspect]
     Active Substance: THIAMINE HYDROCHLORIDE
     Route: 065

REACTIONS (7)
  - Osteoporosis [Recovered/Resolved]
  - Dyslipidaemia [Recovered/Resolved]
  - Drug ineffective [Recovered/Resolved]
  - Drug hypersensitivity [Recovered/Resolved]
  - Diabetes mellitus [Recovered/Resolved]
  - Drug intolerance [Recovered/Resolved]
  - Colitis ulcerative [Recovered/Resolved]

NARRATIVE: CASE EVENT DATE: 20080212
